FAERS Safety Report 13861641 (Version 2)
Quarter: 2017Q3

REPORT INFORMATION
  Report Type: Spontaneous
  Country: BR (occurrence: BR)
  Receive Date: 20170811
  Receipt Date: 20170822
  Transmission Date: 20171127
  Serious: Yes (Hospitalization)
  Sender: FDA-Public Use
  Company Number: BR-GEHC-2017CSU002503

PATIENT

DRUGS (7)
  1. METAMIZOLE [Concomitant]
     Active Substance: METAMIZOLE
  2. OMNIPAQUE [Suspect]
     Active Substance: IOHEXOL
     Indication: LOCALISED OEDEMA
     Dosage: 50 ML, SINGLE
     Route: 042
     Dates: start: 20170731, end: 20170731
  3. BUTYLSCOPOLAMINE [Concomitant]
     Active Substance: BUTYLSCOPOLAMINE
  4. SCOPOLAMINE                        /00008701/ [Concomitant]
     Active Substance: SCOPOLAMINE
  5. PROFENID [Concomitant]
     Active Substance: KETOPROFEN
     Dosage: 100 MG, UNK
     Route: 042
     Dates: start: 20170731, end: 20170731
  6. BUSCOPAN [Concomitant]
     Active Substance: BUTYLSCOPOLAMINE BROMIDE
  7. ACETAMINOPHEN. [Concomitant]
     Active Substance: ACETAMINOPHEN

REACTIONS (3)
  - Throat tightness [Recovered/Resolved]
  - Respiratory disorder [Recovered/Resolved]
  - Malaise [Recovered/Resolved]

NARRATIVE: CASE EVENT DATE: 20170731
